FAERS Safety Report 5247219-8 (Version None)
Quarter: 2007Q1

REPORT INFORMATION
  Report Type: 
  Country: None (occurrence: None)
  Receive Date: 20070220
  Receipt Date: 20070205
  Transmission Date: 20070707
  Serious: Yes (Hospitalization)
  Sender: FDA-Public Use
  Company Number: MC200700106

PATIENT
  Age: 83 Year
  Sex: Female
  Weight: 95 kg

DRUGS (1)
  1. ANGIOMAX [Suspect]
     Indication: PERCUTANEOUS CORONARY INTERVENTION
     Dosage: 14ML, BOLUS, IV BOLUS, 33 ML HR, INTRAVENOUS
     Route: 040

REACTIONS (2)
  - CARDIO-RESPIRATORY ARREST [None]
  - CORONARY ARTERY THROMBOSIS [None]
